FAERS Safety Report 7747632-0 (Version None)
Quarter: 2011Q3

REPORT INFORMATION
  Report Type: 
  Country: None (occurrence: None)
  Receive Date: 20110913
  Receipt Date: 20110909
  Transmission Date: 20111222
  Serious: Yes (Disabling)
  Sender: FDA-Public Use
  Company Number: JP-PFIZER INC-2011200910

PATIENT
  Age: 45 Year
  Sex: Male

DRUGS (5)
  1. METHYCOBAL [Concomitant]
     Indication: HYPOAESTHESIA
     Dosage: 500 MG, 2X/DAY
     Route: 048
     Dates: start: 20110721, end: 20110804
  2. METHYCOBAL [Concomitant]
     Indication: BACK PAIN
  3. LYRICA [Suspect]
     Indication: PAIN IN EXTREMITY
     Dosage: 75 MG, 2X/DAY
     Route: 048
     Dates: start: 20110714, end: 20110715
  4. LYRICA [Suspect]
     Indication: BACK PAIN
     Dosage: 75 MG, 1X/DAY
     Route: 048
     Dates: start: 20110716, end: 20110803
  5. METHYCOBAL [Concomitant]

REACTIONS (2)
  - URINARY INCONTINENCE [None]
  - FAECAL INCONTINENCE [None]
